FAERS Safety Report 7261088-6 (Version None)
Quarter: 2011Q1

REPORT INFORMATION
  Report Type: 
  Country: None (occurrence: None)
  Receive Date: 20110130
  Receipt Date: 20101228
  Transmission Date: 20110831
  Serious: No
  Sender: FDA-Public Use
  Company Number: US-ABBOTT-10P-163-0694207-00

PATIENT
  Age: 59 Year
  Sex: Female

DRUGS (9)
  1. PLAQUENIL [Concomitant]
     Indication: PRODUCT USED FOR UNKNOWN INDICATION
  2. VOLTARIN [Concomitant]
     Indication: EYE DISORDER
  3. CELEXA [Concomitant]
     Indication: DEPRESSION
  4. VERAMYST [Concomitant]
     Indication: ASTHMA
  5. TRAZODONE HCL [Concomitant]
     Indication: PRODUCT USED FOR UNKNOWN INDICATION
  6. HUMIRA [Suspect]
     Indication: RHEUMATOID ARTHRITIS
     Dates: start: 20101227
  7. ALVESCO [Concomitant]
     Indication: ASTHMA
  8. SINGULAIR [Concomitant]
     Indication: ASTHMA
  9. ASTELIN [Concomitant]
     Indication: ASTHMA
     Dosage: 2 SPRAYS NASAL MIST

REACTIONS (1)
  - INFLUENZA LIKE ILLNESS [None]
